FAERS Safety Report 9969959 (Version 4)
Quarter: 2014Q3

REPORT INFORMATION
  Report Type: Spontaneous
  Country: DE (occurrence: DE)
  Receive Date: 20140306
  Receipt Date: 20140813
  Transmission Date: 20150326
  Serious: Yes (Other)
  Sender: FDA-Public Use
  Company Number: DE-THROMBOGENICS NV-JET-2014-071

PATIENT
  Age: 51 Year
  Sex: Female

DRUGS (2)
  1. JETREA [Suspect]
     Active Substance: OCRIPLASMIN
     Indication: VITREOUS ADHESIONS
     Dosage: 0.125 MG, ONE TIME DOSE
     Route: 031
     Dates: start: 20131219, end: 20131219
  2. L-THYROXIN [Concomitant]
     Active Substance: LEVOTHYROXINE SODIUM
     Indication: PRODUCT USED FOR UNKNOWN INDICATION

REACTIONS (13)
  - Eye pain [Unknown]
  - Vitreous floaters [Unknown]
  - Photopsia [Unknown]
  - Ocular hyperaemia [Unknown]
  - Night blindness [Unknown]
  - Accommodation disorder [Not Recovered/Not Resolved]
  - Visual acuity reduced [Recovered/Resolved]
  - Vision blurred [Not Recovered/Not Resolved]
  - Pupillary reflex impaired [Recovered/Resolved]
  - Dysmetropsia [Not Recovered/Not Resolved]
  - Photophobia [Unknown]
  - Headache [Unknown]
  - Pupils unequal [Unknown]

NARRATIVE: CASE EVENT DATE: 20131220
